FAERS Safety Report 6274059-3 (Version None)
Quarter: 2009Q3

REPORT INFORMATION
  Report Type: 
  Country: None (occurrence: None)
  Receive Date: 20090720
  Receipt Date: 20090715
  Transmission Date: 20100115
  Serious: Yes (Life-Threatening, Hospitalization)
  Sender: FDA-Public Use
  Company Number: DE-ASTRAZENECA-2009SE05007

PATIENT
  Age: 84 Year
  Sex: Female
  Weight: 63 kg

DRUGS (15)
  1. SYMBICORT [Interacting]
     Indication: CHRONIC OBSTRUCTIVE PULMONARY DISEASE
     Dosage: 160UG BUDENOSID + 4.5UG FORMOTEROL
     Route: 055
     Dates: start: 20090101
  2. PANTOZOL [Interacting]
     Indication: PROPHYLAXIS AGAINST GASTROINTESTINAL ULCER
     Route: 048
     Dates: start: 20090101
  3. PREDNISOLONE [Interacting]
     Indication: CHRONIC OBSTRUCTIVE PULMONARY DISEASE
     Route: 048
     Dates: start: 20090326, end: 20090604
  4. ASPIRIN [Interacting]
     Indication: CORONARY ARTERY DISEASE
     Route: 048
     Dates: start: 19930101, end: 20090414
  5. RULID [Suspect]
     Indication: PNEUMONIA
     Route: 048
     Dates: start: 20090326, end: 20090406
  6. ROCEPHIN [Suspect]
     Indication: PNEUMONIA
     Route: 042
     Dates: start: 20090326, end: 20090406
  7. CARVEDILOL [Concomitant]
     Indication: HYPERTENSION
     Route: 048
     Dates: start: 19950101
  8. RAMIPRIL [Concomitant]
     Indication: HYPERTENSION
     Route: 048
  9. ALDACTONE [Concomitant]
     Indication: HYPERTENSION
     Route: 048
     Dates: end: 20090407
  10. CARMEN [Concomitant]
     Indication: HYPERTENSION
     Route: 048
  11. TOREM [Concomitant]
     Indication: HYPERTENSION
     Route: 048
     Dates: end: 20090407
  12. XIPAMIDE [Concomitant]
     Indication: HYPERTENSION
     Route: 048
     Dates: start: 20090326, end: 20090414
  13. ACTRAPID HUMAN [Concomitant]
     Indication: TYPE 1 DIABETES MELLITUS
     Dosage: 12/4/8 IU
     Route: 058
  14. LANTUS [Concomitant]
     Indication: TYPE 1 DIABETES MELLITUS
     Route: 058
  15. SPIRIVA [Concomitant]
     Indication: CHRONIC OBSTRUCTIVE PULMONARY DISEASE
     Route: 055
     Dates: start: 20090101

REACTIONS (2)
  - CLOSTRIDIUM DIFFICILE COLITIS [None]
  - DRUG INTERACTION [None]
